FAERS Safety Report 8054112-4 (Version None)
Quarter: 2012Q1

REPORT INFORMATION
  Report Type: 
  Country: None (occurrence: None)
  Receive Date: 20120118
  Receipt Date: 20120113
  Transmission Date: 20120608
  Serious: Yes (Hospitalization)
  Sender: FDA-Public Use
  Company Number: US-B.I. PHARMACEUTICALS,INC./RIDGEFIELD-2012-BP-00812BP

PATIENT
  Sex: Female

DRUGS (5)
  1. UNKNOWN BREATHING TREATMENTS [Concomitant]
     Indication: PNEUMONIA
  2. COMBIVENT [Suspect]
     Indication: EMPHYSEMA
     Dates: start: 20120112
  3. DOXYCYCLINE [Concomitant]
     Indication: PNEUMONIA
  4. AMLODIPINE [Concomitant]
     Indication: PNEUMONIA
     Dosage: 5 MG
     Route: 048
  5. IBUPROFEN [Concomitant]
     Indication: PNEUMONIA

REACTIONS (1)
  - EXTRASYSTOLES [None]
